FAERS Safety Report 7026272-5 (Version None)
Quarter: 2010Q4

REPORT INFORMATION
  Report Type: 
  Country: None (occurrence: None)
  Receive Date: 20101004
  Receipt Date: 20100924
  Transmission Date: 20110411
  Serious: Yes (Other)
  Sender: FDA-Public Use
  Company Number: ES-ELI_LILLY_AND_COMPANY-ES201009007043

PATIENT
  Age: 59 Year
  Sex: Male

DRUGS (18)
  1. BYETTA [Suspect]
     Indication: DIABETES MELLITUS
     Dosage: 10 UG, 3/D
     Dates: start: 20100611, end: 20100823
  2. METFORMIN HCL [Concomitant]
  3. NOVONORM [Concomitant]
  4. PLAVIX [Concomitant]
  5. ASPIRIN [Concomitant]
  6. ALOPURINOL [Concomitant]
  7. ATACAND [Concomitant]
  8. SEGURIL [Concomitant]
  9. CITALOPRAM HYDROBROMIDE [Concomitant]
  10. DINISOR [Concomitant]
  11. LYRICA [Concomitant]
  12. ZARATOR [Concomitant]
  13. NITRODERM [Concomitant]
  14. OMEPRAZOLE [Concomitant]
  15. ADOLONTA [Concomitant]
  16. ZYLORIC [Concomitant]
  17. LORAZEPAM [Concomitant]
  18. FERROSANOL [Concomitant]

REACTIONS (3)
  - DECREASED APPETITE [None]
  - INAPPROPRIATE SCHEDULE OF DRUG ADMINISTRATION [None]
  - RENAL FAILURE [None]
